FAERS Safety Report 15673909 (Version 3)
Quarter: 2018Q4

REPORT INFORMATION
  Report Type: Spontaneous
  Country: LV (occurrence: LV)
  Receive Date: 20181129
  Receipt Date: 20181220
  Transmission Date: 20190205
  Serious: Yes (Hospitalization, Other)
  Sender: FDA-Public Use
  Company Number: LV-GILEAD-2018-0377250

PATIENT
  Age: 59 Year
  Sex: Male

DRUGS (3)
  1. JANUMET [Concomitant]
     Active Substance: METFORMIN HYDROCHLORIDE\SITAGLIPTIN PHOSPHATE
     Indication: DIABETES MELLITUS
     Dosage: 1 DF
     Route: 048
  2. BISOPROLOL [Concomitant]
     Active Substance: BISOPROLOL
  3. EPCLUSA [Suspect]
     Active Substance: SOFOSBUVIR\VELPATASVIR
     Indication: HEPATITIS C
     Dosage: 1 DF
     Route: 048
     Dates: start: 20180808, end: 20181010

REACTIONS (2)
  - Gastric ulcer haemorrhage [Recovered/Resolved]
  - Haemorrhagic anaemia [Recovered/Resolved]

NARRATIVE: CASE EVENT DATE: 20181010
